FAERS Safety Report 5463069-1 (Version None)
Quarter: 2007Q3

REPORT INFORMATION
  Report Type: 
  Country: None (occurrence: None)
  Receive Date: 20070918
  Receipt Date: 20070918
  Transmission Date: 20080115
  Serious: Yes (Hospitalization)
  Sender: FDA-Public Use
  Company Number: None

PATIENT
  Sex: Male
  Weight: 109 kg

DRUGS (14)
  1. IRINOTECAN HCL [Suspect]
     Indication: GLIOBLASTOMA MULTIFORME
     Dosage: 125MG/M2  DAY 1, 8, 22, 29  IV
     Route: 042
     Dates: start: 20070227
  2. IRINOTECAN HCL [Suspect]
     Indication: GLIOBLASTOMA MULTIFORME
     Dosage: 125MG/M2  DAY 1, 8, 22, 29  IV
     Route: 042
     Dates: start: 20070306
  3. TEMODAR [Suspect]
     Indication: GLIOBLASTOMA MULTIFORME
     Dosage: 200MG/M2  DAYS 1-5  PO
     Route: 048
     Dates: start: 20070227, end: 20070303
  4. DECADRON [Concomitant]
  5. ZOFRAN [Concomitant]
  6. LORTAB [Concomitant]
  7. PEPCID [Concomitant]
  8. CELEXA [Concomitant]
  9. IMODIUM [Concomitant]
  10. MULTI-VITAMIN [Concomitant]
  11. ASCORBIC ACID [Concomitant]
  12. CALTRATE [Concomitant]
  13. VITAMIN E [Concomitant]
  14. FIBER [Concomitant]

REACTIONS (14)
  - ATELECTASIS [None]
  - CENTRAL NERVOUS SYSTEM INFECTION [None]
  - CEREBRAL VENTRICLE DILATATION [None]
  - CHEST PAIN [None]
  - DISEASE PROGRESSION [None]
  - DYSPNOEA [None]
  - HEADACHE [None]
  - LOBAR PNEUMONIA [None]
  - ORTHOPNOEA [None]
  - PLEURITIC PAIN [None]
  - SHUNT INFECTION [None]
  - SHUNT MALFUNCTION [None]
  - TUMOUR INVASION [None]
  - VISION BLURRED [None]
